FAERS Safety Report 6728008-1 (Version None)
Quarter: 2010Q2

REPORT INFORMATION
  Report Type: 
  Country: None (occurrence: None)
  Receive Date: 20100512
  Receipt Date: 20100409
  Transmission Date: 20101027
  Serious: No
  Sender: FDA-Public Use
  Company Number: 1000013120

PATIENT
  Age: 58 Year
  Sex: Female

DRUGS (9)
  1. SAVELLA [Suspect]
     Indication: FIBROMYALGIA
     Dosage: 12.5 MG (12.5 MG, 1 IN 1 D), ORAL ; 25 MG (25 MG, 1 IN 1 D), ORAL
     Route: 048
     Dates: start: 20100331, end: 20100406
  2. SAVELLA [Suspect]
     Indication: FIBROMYALGIA
     Dosage: 12.5 MG (12.5 MG, 1 IN 1 D), ORAL ; 25 MG (25 MG, 1 IN 1 D), ORAL
     Route: 048
     Dates: start: 20100407
  3. AMBIEN [Concomitant]
  4. TRAZODONE HCL [Concomitant]
  5. TRIAMTERENE [Concomitant]
  6. MINOCLINE [Concomitant]
  7. ALLOPURINOL [Concomitant]
  8. DIAZEPAM [Concomitant]
  9. ESTRADIOL [Concomitant]

REACTIONS (8)
  - ABDOMINAL DISCOMFORT [None]
  - ANGER [None]
  - FLUSHING [None]
  - HYPERHIDROSIS [None]
  - INSOMNIA [None]
  - LIBIDO DECREASED [None]
  - NAUSEA [None]
  - NIGHT SWEATS [None]
